FAERS Safety Report 14667419 (Version 1)
Quarter: 2018Q1

REPORT INFORMATION
  Report Type: Spontaneous
  Country: FI (occurrence: FI)
  Receive Date: 20180322
  Receipt Date: 20180322
  Transmission Date: 20180509
  Serious: Yes (Disabling, Other)
  Sender: FDA-Public Use
  Company Number: FI-CIPLA LTD.-2018FI12175

PATIENT

DRUGS (2)
  1. LEVETIRACETAM. [Suspect]
     Active Substance: LEVETIRACETAM
     Indication: EPILEPSY
     Dosage: UNK
     Route: 065
  2. LAMOTRIGINE. [Suspect]
     Active Substance: LAMOTRIGINE
     Indication: EPILEPSY
     Dosage: UNK
     Route: 065

REACTIONS (10)
  - Fatigue [Unknown]
  - Epilepsy [Unknown]
  - Sleep apnoea syndrome [Unknown]
  - Terminal insomnia [Unknown]
  - Middle insomnia [Unknown]
  - Anxiety [Unknown]
  - Depressed mood [Unknown]
  - Nervousness [Unknown]
  - Insomnia [Unknown]
  - Irregular sleep phase [Unknown]
